FAERS Safety Report 4469754-2 (Version None)
Quarter: 2004Q4

REPORT INFORMATION
  Report Type: 
  Country: None (occurrence: None)
  Receive Date: 20041005
  Receipt Date: 20040921
  Transmission Date: 20050328
  Serious: Yes (Death, Life-Threatening, Hospitalization, Disabling)
  Sender: FDA-Public Use
  Company Number: 2004AP03224

PATIENT
  Age: 75 Year
  Sex: Female
  Weight: 53.5 kg

DRUGS (7)
  1. FULVESTRANT [Suspect]
     Indication: BREAST CANCER
     Dosage: 500 MG IM
     Route: 030
     Dates: start: 20040408, end: 20040408
  2. FULVESTRANT [Suspect]
     Indication: BREAST CANCER
     Dosage: 250 MG IM
     Route: 030
     Dates: start: 20040422, end: 20040422
  3. HACHIMIGAN [Concomitant]
  4. ALFAROL [Concomitant]
  5. FULVESTRANT [Suspect]
     Indication: BREAST CANCER
     Dosage: 250 MG IM
     Route: 030
     Dates: start: 20040506, end: 20040506
  6. ADRIAMYCIN PFS [Suspect]
     Indication: BREAST CANCER
     Dosage: 90 MG IVD
     Route: 041
     Dates: start: 20040608, end: 20040802
  7. CYCLOPHOSPHAMIDE [Suspect]
     Indication: BREAST CANCER
     Dosage: 900 MG IVD
     Route: 041
     Dates: start: 20040608, end: 20040802

REACTIONS (9)
  - CEREBRAL INFARCTION [None]
  - DISEASE PROGRESSION [None]
  - DRUG INEFFECTIVE [None]
  - ENDOCARDITIS NONINFECTIVE [None]
  - LOSS OF CONSCIOUSNESS [None]
  - METASTASES TO LIVER [None]
  - PLEURAL EFFUSION [None]
  - THROMBOSIS [None]
  - TUMOUR EMBOLISM [None]
